FAERS Safety Report 4566751-3 (Version None)
Quarter: 2005Q1

REPORT INFORMATION
  Report Type: 
  Country: None (occurrence: None)
  Receive Date: 20050201
  Receipt Date: 20011002
  Transmission Date: 20050727
  Serious: Yes (Other)
  Sender: FDA-Public Use
  Company Number: US-BRISTOL-MYERS SQUIBB COMPANY-11056850

PATIENT
  Age: 55 Year
  Sex: Female

DRUGS (9)
  1. STADOL [Suspect]
     Route: 045
  2. HYDROCODONE TARTRATE+ACETAMINOPHEN [Concomitant]
  3. DIFLUCAN [Concomitant]
  4. DIAZEPAM [Concomitant]
  5. NEURONTIN [Concomitant]
  6. METOCLOPRAMIDE [Concomitant]
  7. DICYCLOMINE [Concomitant]
  8. PROCARDIA XL [Concomitant]
  9. PREMARIN [Concomitant]

REACTIONS (1)
  - DEPENDENCE [None]
